FAERS Safety Report 18650534 (Version 1)
Quarter: 2020Q4

REPORT INFORMATION
  Report Type: Report from Study
  Country: US (occurrence: US)
  Receive Date: 20201222
  Receipt Date: 20201222
  Transmission Date: 20210114
  Serious: Yes (Hospitalization)
  Sender: FDA-Public Use
  Company Number: US-GILEAD-2020-0509974

PATIENT
  Sex: Male

DRUGS (10)
  1. CETIRIZINE [Concomitant]
     Active Substance: CETIRIZINE HYDROCHLORIDE
  2. FLOVENT [Concomitant]
     Active Substance: FLUTICASONE PROPIONATE
  3. ORKAMBI [Concomitant]
     Active Substance: IVACAFTOR\LUMACAFTOR
  4. AZTREONAM LYSINE [Suspect]
     Active Substance: AZTREONAM LYSINE
     Indication: CYSTIC FIBROSIS LUNG
     Dosage: 1 DOSAGE FORM, TID, INHALE 1 VIAL (1ML) VIA NEBULIZER TID FOR 28  DAYS ON AND 28 DAYS OFF
     Route: 055
     Dates: start: 20200428
  5. PERTZYE [Concomitant]
     Active Substance: PANCRELIPASE AMYLASE\PANCRELIPASE LIPASE\PANCRELIPASE PROTEASE
  6. PROAIR HFA [Concomitant]
     Active Substance: ALBUTEROL SULFATE
  7. PULMOZYME [Concomitant]
     Active Substance: DORNASE ALFA
  8. FLUTICASONE. [Concomitant]
     Active Substance: FLUTICASONE
  9. AZITHROMYCIN ANHYDROUS. [Concomitant]
     Active Substance: AZITHROMYCIN ANHYDROUS
  10. HYPERSAL [Concomitant]
     Active Substance: SODIUM CHLORIDE

REACTIONS (1)
  - Viral infection [Unknown]
